FAERS Safety Report 6936414-5 (Version None)
Quarter: 2010Q3

REPORT INFORMATION
  Report Type: 
  Country: None (occurrence: None)
  Receive Date: 20100817
  Receipt Date: 20100525
  Transmission Date: 20110219
  Serious: No
  Sender: FDA-Public Use
  Company Number: WAES 1005USA04261

PATIENT
  Age: 50 Year
  Sex: Male

DRUGS (12)
  1. ISENTRESS [Suspect]
     Indication: HIV INFECTION
     Dosage: 400 MG/DAILY/PO
     Route: 048
     Dates: start: 20091208
  2. ADDERALL TABLETS [Concomitant]
  3. BACTRIM [Concomitant]
  4. EFFEXOR XR [Concomitant]
  5. NORVIR [Concomitant]
  6. PERCOCET [Concomitant]
  7. PREZISTA [Concomitant]
  8. TRUVADA [Concomitant]
  9. ACYCLOVIR [Concomitant]
  10. ALPRAZOLAM [Concomitant]
  11. FLUCONAZOLE [Concomitant]
  12. TEMAZEPAM [Concomitant]

REACTIONS (3)
  - CD4 LYMPHOCYTES DECREASED [None]
  - CELLULITIS [None]
  - VIRAL LOAD INCREASED [None]
